FAERS Safety Report 5029355-4 (Version None)
Quarter: 2006Q2

REPORT INFORMATION
  Report Type: 
  Country: None (occurrence: None)
  Receive Date: 20060614
  Receipt Date: 20060530
  Transmission Date: 20061013
  Serious: Yes (Hospitalization)
  Sender: FDA-Public Use
  Company Number: 2005US001027

PATIENT
  Age: 23 Year
  Sex: Male

DRUGS (13)
  1. PROGRAF [Suspect]
     Indication: PROPHYLAXIS AGAINST TRANSPLANT REJECTION
     Dosage: 2 MG, BID, ORAL
     Route: 048
     Dates: start: 20050112, end: 20060111
  2. MYCOPHENOLATE MOFETIL [Suspect]
     Indication: PROPHYLAXIS AGAINST TRANSPLANT REJECTION
     Dosage: 100 MG, BID, ORAL
     Route: 048
     Dates: start: 20050614, end: 20060111
  3. PREDNISONE TAB [Suspect]
     Indication: PROPHYLAXIS AGAINST TRANSPLANT REJECTION
     Dosage: UID/QD, ORAL
     Route: 048
     Dates: start: 20050618
  4. SOLU-MEDROL [Suspect]
     Indication: PROPHYLAXIS AGAINST TRANSPLANT REJECTION
     Dosage: 500 MG, IV NOS
     Route: 042
     Dates: start: 20050614, end: 20050617
  5. BACTRIM [Concomitant]
  6. FLUCONAZOLE [Concomitant]
  7. CLONIDINE [Concomitant]
  8. ACYCLOVIR [Concomitant]
  9. PEPCID [Concomitant]
  10. NORVASC [Concomitant]
  11. ASPIRIN [Concomitant]
  12. SIMULECT [Concomitant]
  13. MORPHINE SULFATE [Concomitant]

REACTIONS (2)
  - FOCAL GLOMERULOSCLEROSIS [None]
  - HYPERKALAEMIA [None]
